FAERS Safety Report 5641015-5 (Version None)
Quarter: 2008Q1

REPORT INFORMATION
  Report Type: 
  Country: None (occurrence: None)
  Receive Date: 20080225
  Receipt Date: 20080207
  Transmission Date: 20080703
  Serious: Yes (Other)
  Sender: FDA-Public Use
  Company Number: 8029849

PATIENT
  Age: 64 Year
  Sex: Male

DRUGS (1)
  1. KEPPRA [Suspect]
     Indication: EPILEPSY
     Dosage: 2 G 1/D PO
     Route: 048
     Dates: start: 20040101

REACTIONS (2)
  - DRY MOUTH [None]
  - TOOTH EXTRACTION [None]
